FAERS Safety Report 17631817 (Version 2)
Quarter: 2020Q2

REPORT INFORMATION
  Report Type: Report from Study
  Country: DE (occurrence: DE)
  Receive Date: 20200406
  Receipt Date: 20200407
  Transmission Date: 20200713
  Serious: Yes (Hospitalization)
  Sender: FDA-Public Use
  Company Number: DE-ROCHE-2557971

PATIENT
  Age: 45 Year
  Sex: Female
  Weight: 50.6 kg

DRUGS (7)
  1. ATEZOLIZUMAB. [Suspect]
     Active Substance: ATEZOLIZUMAB
     Dosage: DATE OF MOST RECENT DOSE OF BLINDED ATEZOLIZUMAB PRIOR TO AE/SAE ONSET 19/FEB/2020 (1200 MG)
     Route: 041
     Dates: start: 20191204
  2. CYCLOPHOSPHAMIDE. [Suspect]
     Active Substance: CYCLOPHOSPHAMIDE
     Dosage: ON 15/JAN/2020, SHE RECEIVED MOST RECENT DOSE OF CYCLOPHOSPHAMIDE (990 MG) PRIOR TO AE/SAE ONSET
     Route: 042
     Dates: start: 20191204
  3. TRASTUZUMAB. [Suspect]
     Active Substance: TRASTUZUMAB
     Dosage: INITIAL LOADING DOSE,?ON 19/FEB/2020, SHE RECEIVED MOST RECENT DOSE OF TRASTUZUMAB (303.6 MG) (MAINT
     Route: 041
     Dates: start: 20200129, end: 20200129
  4. PACLITAXEL. [Suspect]
     Active Substance: PACLITAXEL
     Dosage: ON 19/FEB/2020, SHE RECEIVED MOST RECENT DOSE OF PACLITAXEL (123.2 MG) PRIOR TO AE/SAE ONSET
     Route: 042
     Dates: start: 20200129
  5. DOXORUBICIN [Suspect]
     Active Substance: DOXORUBICIN
     Dosage: ON 15/JAN/2020, SHE RECEIVED MOST RECENT DOSE OF DOXORUBICIN (99 MG) PRIOR TO AE/SAE ONSET
     Route: 042
     Dates: start: 20191204
  6. DEKRISTOL [Concomitant]
     Active Substance: CHOLECALCIFEROL
     Indication: NUTRITIONAL SUPPLEMENTATION
     Route: 065
     Dates: start: 20191205
  7. PERTUZUMAB. [Suspect]
     Active Substance: PERTUZUMAB
     Dosage: INITIAL LOADING DOSE,?ON 19/FEB/2020, SHE RECEIVED MOST RECENT DOSE OF PERTUZUMAB (420 MG) (MAINTENA
     Route: 042
     Dates: start: 20200129, end: 20200129

REACTIONS (1)
  - Nervous system neoplasm benign [Not Recovered/Not Resolved]

NARRATIVE: CASE EVENT DATE: 20200225
